FAERS Safety Report 7725719-6 (Version None)
Quarter: 2011Q3

REPORT INFORMATION
  Report Type: 
  Country: None (occurrence: None)
  Receive Date: 20110902
  Receipt Date: 20110823
  Transmission Date: 20111222
  Serious: Yes (Other)
  Sender: FDA-Public Use
  Company Number: US-US-EMD SERONO, INC.-7079115

PATIENT
  Sex: Male

DRUGS (3)
  1. SAIZEN [Suspect]
     Indication: GROWTH HORMONE DEFICIENCY
     Dates: start: 20080222
  2. SAIZEN [Suspect]
  3. SAIZEN [Suspect]
     Dates: end: 20110801

REACTIONS (2)
  - ARTHRALGIA [None]
  - INTRACRANIAL PRESSURE INCREASED [None]
